FAERS Safety Report 24751520 (Version 1)
Quarter: 2024Q4

REPORT INFORMATION
  Report Type: Spontaneous
  Country: US (occurrence: US)
  Receive Date: 20241219
  Receipt Date: 20241219
  Transmission Date: 20250115
  Serious: Yes (Hospitalization)
  Sender: PACIRA
  Company Number: US-ORG100016242-2024000464

PATIENT
  Age: 8 Year

DRUGS (4)
  1. EXPAREL [Suspect]
     Active Substance: BUPIVACAINE
     Indication: Cleft palate repair
     Dosage: 2CC EXPAREL SOAKED INTO THE BOVINE COLLAGEN WITH ANOTHER 4CC ON THE DONOR SITE INCISION
     Route: 050
     Dates: start: 20240703, end: 20240703
  2. BOVINE TYPE I COLLAGEN [Suspect]
     Active Substance: BOVINE TYPE I COLLAGEN
     Indication: Cleft palate repair
     Dosage: 2CC EXPAREL SOAKED INTO THE BOVINE COLLAGEN WITH ANOTHER 4CC ON THE DONOR SITE INCISION
     Route: 050
     Dates: start: 20240703, end: 20240703
  3. ROPIVACAINE [Concomitant]
     Active Substance: ROPIVACAINE
     Indication: Cleft palate repair
     Dosage: AT THE BEGINNING OF THE CASE, 20 MINUTES PRIOR TO EXPAREL
     Dates: start: 20240703, end: 20240703
  4. LIDOCAINE [Concomitant]
     Active Substance: LIDOCAINE
     Indication: Cleft palate repair
     Dosage: AT THE BEGINNING OF THE CASE, 20 MINUTES PRIOR TO EXPAREL
     Dates: start: 20240703, end: 20240703

REACTIONS (3)
  - Anaphylactic reaction [Unknown]
  - Hypotension [Unknown]
  - Off label use [Unknown]

NARRATIVE: CASE EVENT DATE: 20240703
